FAERS Safety Report 8194033-X (Version None)
Quarter: 2012Q1

REPORT INFORMATION
  Report Type: 
  Country: None (occurrence: None)
  Receive Date: 20120308
  Receipt Date: 20120301
  Transmission Date: 20120608
  Serious: Yes (Other)
  Sender: FDA-Public Use
  Company Number: JP-MERCK-1112USA00669

PATIENT
  Age: 83 Year
  Sex: Female

DRUGS (4)
  1. AMOXAPINE [Concomitant]
     Route: 065
  2. DEPAS [Concomitant]
     Route: 065
  3. GASMOTIN [Concomitant]
     Route: 065
  4. JANUVIA [Suspect]
     Indication: TYPE 2 DIABETES MELLITUS
     Route: 048
     Dates: start: 20111019, end: 20111128

REACTIONS (2)
  - JAUNDICE [None]
  - BLOOD BILIRUBIN INCREASED [None]
